FAERS Safety Report 5889754-5 (Version None)
Quarter: 2008Q3

REPORT INFORMATION
  Report Type: 
  Country: None (occurrence: None)
  Receive Date: 20080919
  Receipt Date: 20080915
  Transmission Date: 20090109
  Serious: Yes (Hospitalization)
  Sender: FDA-Public Use
  Company Number: FR-MERCK-0809FRA00049

PATIENT
  Age: 85 Year
  Sex: Female

DRUGS (8)
  1. NOROXIN [Suspect]
     Indication: URINARY TRACT INFECTION
     Route: 048
     Dates: start: 20080314, end: 20080317
  2. AMOXICILLIN [Suspect]
     Indication: URINARY TRACT INFECTION
     Route: 048
     Dates: start: 20080319, end: 20080321
  3. OLANZAPINE [Suspect]
     Route: 048
     Dates: start: 20080319, end: 20080323
  4. CARBAMAZEPINE [Suspect]
     Route: 048
     Dates: start: 20080319, end: 20080321
  5. CARBAMAZEPINE [Suspect]
     Route: 048
     Dates: end: 20080318
  6. ACEPROMAZINE AND ACEPROMETAZINE AND CLORAZEPATE DIPOTASSIUM [Concomitant]
     Route: 048
  7. OMEPRAZOLE [Concomitant]
     Route: 048
  8. BISOPROLOL [Concomitant]
     Route: 048

REACTIONS (4)
  - DYSPNOEA [None]
  - EOSINOPHILIA [None]
  - RASH ERYTHEMATOUS [None]
  - TOXIC SKIN ERUPTION [None]
